FAERS Safety Report 14275770 (Version 13)
Quarter: 2019Q2

REPORT INFORMATION
  Report Type: Report from Study
  Country: CA (occurrence: CA)
  Receive Date: 20171212
  Receipt Date: 20190626
  Transmission Date: 20190711
  Serious: Yes (Hospitalization, Other)
  Sender: FDA-Public Use
  Company Number: CA-TAKEDA-2017TUS025468

PATIENT
  Age: 29 Year
  Sex: Female

DRUGS (7)
  1. VEDOLIZUMAB [Suspect]
     Active Substance: VEDOLIZUMAB
     Indication: COLITIS ULCERATIVE
     Dosage: 300 MILLIGRAM
     Route: 042
     Dates: start: 20171115
  2. VEDOLIZUMAB [Suspect]
     Active Substance: VEDOLIZUMAB
     Dosage: 300 MILLIGRAM
     Route: 042
  3. VEDOLIZUMAB [Suspect]
     Active Substance: VEDOLIZUMAB
     Dosage: 300 MILLIGRAM
     Route: 042
     Dates: start: 20190228
  4. VEDOLIZUMAB [Suspect]
     Active Substance: VEDOLIZUMAB
     Dosage: 300 MILLIGRAM
     Route: 042
  5. CORTIMENT                          /00028601/ [Concomitant]
     Active Substance: HYDROCORTISONE
     Dosage: 9 MILLIGRAM, QD
  6. VEDOLIZUMAB [Suspect]
     Active Substance: VEDOLIZUMAB
     Dosage: 300 MILLIGRAM
     Route: 042
  7. VEDOLIZUMAB [Suspect]
     Active Substance: VEDOLIZUMAB
     Dosage: 300 MILLIGRAM, Q4WEEKS
     Route: 042
     Dates: start: 20190328

REACTIONS (16)
  - Diarrhoea [Recovered/Resolved]
  - Ill-defined disorder [Unknown]
  - Rectal haemorrhage [Recovering/Resolving]
  - Hypoaesthesia [Unknown]
  - Cough [Unknown]
  - Dizziness [Unknown]
  - Asthenia [Unknown]
  - Headache [Recovered/Resolved]
  - Pyrexia [Recovering/Resolving]
  - Vomiting [Recovered/Resolved]
  - Colitis ulcerative [Recovered/Resolved]
  - Gastrointestinal polyp [Unknown]
  - Haematochezia [Not Recovered/Not Resolved]
  - Off label use [Unknown]
  - Abdominal pain [Recovered/Resolved]
  - Nausea [Recovered/Resolved]

NARRATIVE: CASE EVENT DATE: 20171124
